FAERS Safety Report 7198077-6 (Version None)
Quarter: 2010Q4

REPORT INFORMATION
  Report Type: 
  Country: None (occurrence: None)
  Receive Date: 20101227
  Receipt Date: 20101215
  Transmission Date: 20110411
  Serious: Yes (Hospitalization)
  Sender: FDA-Public Use
  Company Number: JP-JNJFOC-20101206875

PATIENT
  Sex: Female

DRUGS (4)
  1. DUROTEP MT [Suspect]
     Indication: METASTASES TO BONE
     Route: 062
  2. DUROTEP MT [Suspect]
     Route: 062
  3. UNKNOWN MEDICATION [Concomitant]
     Route: 065
  4. OXINORM [Concomitant]
     Route: 048

REACTIONS (3)
  - BLOOD PRESSURE INCREASED [None]
  - CONDITION AGGRAVATED [None]
  - INAPPROPRIATE SCHEDULE OF DRUG ADMINISTRATION [None]
